FAERS Safety Report 25581124 (Version 1)
Quarter: 2025Q3

REPORT INFORMATION
  Report Type: Spontaneous
  Country: US (occurrence: US)
  Receive Date: 20250718
  Receipt Date: 20250718
  Transmission Date: 20251021
  Serious: No
  Sender: NOVO NORDISK
  Company Number: US-NOVOPROD-1457696

PATIENT
  Age: 15 Year
  Sex: Female

DRUGS (2)
  1. WEGOVY [Suspect]
     Active Substance: SEMAGLUTIDE
     Indication: Binge eating
  2. WEGOVY [Suspect]
     Active Substance: SEMAGLUTIDE
     Indication: Weight control
     Dosage: 0.5 MG, QW
     Route: 058

REACTIONS (2)
  - Pain in extremity [Unknown]
  - Inappropriate schedule of product administration [Unknown]

NARRATIVE: CASE EVENT DATE: 20250523
